FAERS Safety Report 10261491 (Version 1)
Quarter: 2014Q2

REPORT INFORMATION
  Report Type: Spontaneous
  Country: US (occurrence: US)
  Receive Date: 20140626
  Receipt Date: 20140626
  Transmission Date: 20141212
  Serious: Yes (Hospitalization)
  Sender: FDA-Public Use
  Company Number: US-SA-2014SA081127

PATIENT
  Sex: Female

DRUGS (4)
  1. LANTUS SOLOSTAR [Suspect]
     Indication: TYPE 2 DIABETES MELLITUS
     Dosage: DOSE: 25 U AM AND 40 U PM
     Route: 065
  2. LANTUS SOLOSTAR [Suspect]
     Indication: TYPE 2 DIABETES MELLITUS
     Dosage: DOSE: 25 U AM AND 40 U PM
     Route: 065
  3. SOLOSTAR [Concomitant]
     Indication: DIABETES MELLITUS
  4. SOLOSTAR [Concomitant]
     Indication: DIABETES MELLITUS

REACTIONS (4)
  - Renal failure [Unknown]
  - Blood glucose increased [Unknown]
  - Drug dose omission [Unknown]
  - Drug administration error [Unknown]
